FAERS Safety Report 7129824-7 (Version None)
Quarter: 2010Q4

REPORT INFORMATION
  Report Type: 
  Country: None (occurrence: None)
  Receive Date: 20101130
  Receipt Date: 20100902
  Transmission Date: 20110411
  Serious: Yes (Other)
  Sender: FDA-Public Use
  Company Number: US-AMGEN-QUU435728

PATIENT

DRUGS (3)
  1. NPLATE [Suspect]
     Indication: IDIOPATHIC THROMBOCYTOPENIC PURPURA
     Dosage: 10 A?G/KG, QWK
     Dates: start: 20100329, end: 20100719
  2. DANAZOL [Concomitant]
     Dosage: UNK UNK, UNK
  3. CYCLOSPORINE [Concomitant]
     Dosage: UNK UNK, UNK

REACTIONS (1)
  - DRUG INEFFECTIVE [None]
